FAERS Safety Report 13574709 (Version 3)
Quarter: 2018Q2

REPORT INFORMATION
  Report Type: Spontaneous
  Country: US (occurrence: US)
  Receive Date: 20170523
  Receipt Date: 20180503
  Transmission Date: 20180711
  Serious: Yes (Death)
  Sender: FDA-Public Use
  Company Number: US-ACTELION-A-US2017-154192

PATIENT
  Age: 56 Year
  Sex: Female
  Weight: 58.96 kg

DRUGS (1)
  1. OPSUMIT [Suspect]
     Active Substance: MACITENTAN
     Indication: PULMONARY ARTERIAL HYPERTENSION
     Dosage: 10 MG, QD
     Route: 048

REACTIONS (3)
  - Death [Fatal]
  - Urinary retention [Unknown]
  - Myalgia [Unknown]

NARRATIVE: CASE EVENT DATE: 20180405
